FAERS Safety Report 21364117 (Version 1)
Quarter: 2022Q3

REPORT INFORMATION
  Report Type: Report from Study
  Country: US (occurrence: US)
  Receive Date: 20220922
  Receipt Date: 20220922
  Transmission Date: 20221027
  Serious: Yes (Hospitalization, Other)
  Sender: FDA-Public Use
  Company Number: US-TAKEDA-2022TUS066669

PATIENT
  Age: 62 Year
  Sex: Female

DRUGS (16)
  1. TEDUGLUTIDE [Suspect]
     Active Substance: TEDUGLUTIDE
     Indication: Short-bowel syndrome
     Dosage: 5.3 MILLIGRAM, QD
     Route: 042
     Dates: start: 20210120, end: 20210215
  2. TEDUGLUTIDE [Suspect]
     Active Substance: TEDUGLUTIDE
     Indication: Short-bowel syndrome
     Dosage: 5.3 MILLIGRAM, QD
     Route: 042
     Dates: start: 20210120, end: 20210215
  3. TEDUGLUTIDE [Suspect]
     Active Substance: TEDUGLUTIDE
     Indication: Short-bowel syndrome
     Dosage: 5.3 MILLIGRAM, QD
     Route: 042
     Dates: start: 20210120, end: 20210215
  4. TEDUGLUTIDE [Suspect]
     Active Substance: TEDUGLUTIDE
     Indication: Short-bowel syndrome
     Dosage: 5.3 MILLIGRAM, QD
     Route: 042
     Dates: start: 20210120, end: 20210215
  5. TEDUGLUTIDE [Suspect]
     Active Substance: TEDUGLUTIDE
     Dosage: 5.3 MILLIGRAM, QD
     Route: 042
     Dates: start: 20210402, end: 20210526
  6. TEDUGLUTIDE [Suspect]
     Active Substance: TEDUGLUTIDE
     Dosage: 5.3 MILLIGRAM, QD
     Route: 042
     Dates: start: 20210402, end: 20210526
  7. TEDUGLUTIDE [Suspect]
     Active Substance: TEDUGLUTIDE
     Dosage: 5.3 MILLIGRAM, QD
     Route: 042
     Dates: start: 20210402, end: 20210526
  8. TEDUGLUTIDE [Suspect]
     Active Substance: TEDUGLUTIDE
     Dosage: 5.3 MILLIGRAM, QD
     Route: 042
     Dates: start: 20210402, end: 20210526
  9. TEDUGLUTIDE [Suspect]
     Active Substance: TEDUGLUTIDE
     Dosage: 4.5 MILLIGRAM, 4/WEEK
     Route: 042
     Dates: start: 20210830
  10. TEDUGLUTIDE [Suspect]
     Active Substance: TEDUGLUTIDE
     Dosage: 4.5 MILLIGRAM, 4/WEEK
     Route: 042
     Dates: start: 20210830
  11. TEDUGLUTIDE [Suspect]
     Active Substance: TEDUGLUTIDE
     Dosage: 4.5 MILLIGRAM, 4/WEEK
     Route: 042
     Dates: start: 20210830
  12. TEDUGLUTIDE [Suspect]
     Active Substance: TEDUGLUTIDE
     Dosage: 4.5 MILLIGRAM, 4/WEEK
     Route: 042
     Dates: start: 20210830
  13. ALTEPLASE [Concomitant]
     Active Substance: ALTEPLASE
     Indication: Complication associated with device
     Dosage: 2 MILLIGRAM
     Route: 042
     Dates: start: 20210614, end: 20210614
  14. ROCEPHIN [Concomitant]
     Active Substance: CEFTRIAXONE SODIUM
     Indication: Infection
     Dosage: 1 GRAM, QD
     Route: 042
     Dates: start: 20210217, end: 202102
  15. ZOSYN [Concomitant]
     Active Substance: PIPERACILLIN SODIUM\TAZOBACTAM SODIUM
     Indication: Infection
     Dosage: 3.38 GRAM, TID
     Route: 042
     Dates: start: 20210215, end: 20210217
  16. DEXTROSE [Concomitant]
     Active Substance: DEXTROSE
     Indication: Acute kidney injury
     Dosage: 1000 MILLILITER
     Route: 042
     Dates: start: 20210215, end: 20210215

REACTIONS (1)
  - Urosepsis [Recovered/Resolved]

NARRATIVE: CASE EVENT DATE: 20210601
